FAERS Safety Report 17005545 (Version 2)
Quarter: 2019Q4

REPORT INFORMATION
  Report Type: Report from Study
  Country: CN (occurrence: CN)
  Receive Date: 20191107
  Receipt Date: 20191203
  Transmission Date: 20200122
  Serious: Yes (Other)
  Sender: FDA-Public Use
  Company Number: CN-TAKEDA-2018MPI009229

PATIENT
  Age: 44 Year
  Sex: Female

DRUGS (2)
  1. BORTEZOMIB. [Suspect]
     Active Substance: BORTEZOMIB
     Indication: MANTLE CELL LYMPHOMA
     Dosage: 2.1 MILLIGRAM
     Route: 065
     Dates: start: 20170920, end: 20171213
  2. BORTEZOMIB. [Suspect]
     Active Substance: BORTEZOMIB
     Indication: ADVERSE EVENT
     Dosage: 2.1 MILLIGRAM
     Route: 065
     Dates: start: 20180108, end: 20180212

REACTIONS (4)
  - Pyrexia [Recovered/Resolved]
  - Agranulocytosis [Recovered/Resolved]
  - White blood cell count decreased [Recovered/Resolved]
  - Abdominal discomfort [Recovered/Resolved]

NARRATIVE: CASE EVENT DATE: 20171102
